FAERS Safety Report 17077834 (Version 2)
Quarter: 2019Q4

REPORT INFORMATION
  Report Type: Spontaneous
  Country: US (occurrence: US)
  Receive Date: 20191126
  Receipt Date: 20191209
  Transmission Date: 20200122
  Serious: Yes (Hospitalization)
  Sender: FDA-Public Use
  Company Number: US-CELGENEUS-USA-20191109764

PATIENT
  Age: 49 Year
  Sex: Female

DRUGS (19)
  1. ABRAXANE [Suspect]
     Active Substance: PACLITAXEL
     Dosage: 204 MILLIGRAM
     Route: 042
     Dates: start: 20190607, end: 20190607
  2. ABRAXANE [Suspect]
     Active Substance: PACLITAXEL
     Dosage: 204 MILLIGRAM
     Route: 042
     Dates: start: 20190710, end: 20190710
  3. ABRAXANE [Suspect]
     Active Substance: PACLITAXEL
     Indication: NON-SMALL CELL LUNG CANCER STAGE IV
     Dosage: 204 MILLIGRAM
     Route: 042
     Dates: start: 20190524, end: 20190524
  4. ABRAXANE [Suspect]
     Active Substance: PACLITAXEL
     Dosage: 204 MILLIGRAM
     Route: 042
     Dates: start: 20190614, end: 20190614
  5. ABRAXANE [Suspect]
     Active Substance: PACLITAXEL
     Dosage: 204 MILLIGRAM
     Route: 042
     Dates: start: 20190625, end: 20190625
  6. ABRAXANE [Suspect]
     Active Substance: PACLITAXEL
     Dosage: 204 MILLIGRAM
     Route: 042
     Dates: start: 20190703, end: 20190703
  7. ABRAXANE [Suspect]
     Active Substance: PACLITAXEL
     Dosage: 204 MILLIGRAM
     Route: 042
     Dates: start: 20190722, end: 20190722
  8. CARBOPLATIN. [Suspect]
     Active Substance: CARBOPLATIN
     Indication: NON-SMALL CELL LUNG CANCER STAGE IV
     Dosage: 676 MILLIGRAM
     Route: 042
     Dates: start: 20190524, end: 20190524
  9. ABRAXANE [Suspect]
     Active Substance: PACLITAXEL
     Dosage: 204 MILLIGRAM
     Route: 042
     Dates: start: 20190729, end: 20190729
  10. DURVALUMAB. [Suspect]
     Active Substance: DURVALUMAB
     Indication: NON-SMALL CELL LUNG CANCER STAGE IV
     Dosage: 1500 MILLIGRAM
     Route: 042
     Dates: start: 20190524, end: 20190524
  11. CARBOPLATIN. [Suspect]
     Active Substance: CARBOPLATIN
     Dosage: 650 MILLIGRAM
     Route: 042
     Dates: start: 20190614, end: 20190614
  12. CARBOPLATIN. [Suspect]
     Active Substance: CARBOPLATIN
     Dosage: 790 MILLIGRAM
     Route: 042
     Dates: start: 20190816, end: 20190816
  13. DURVALUMAB. [Suspect]
     Active Substance: DURVALUMAB
     Dosage: 1500 MILLIGRAM
     Route: 042
     Dates: start: 20190614, end: 20190614
  14. CARBOPLATIN. [Suspect]
     Active Substance: CARBOPLATIN
     Dosage: 734 MILLIGRAM
     Route: 042
     Dates: start: 20190614, end: 20190614
  15. ABRAXANE [Suspect]
     Active Substance: PACLITAXEL
     Dosage: 204 MILLIGRAM
     Route: 042
     Dates: start: 20190531, end: 20190531
  16. DURVALUMAB. [Suspect]
     Active Substance: DURVALUMAB
     Dosage: 1500 MILLIGRAM
     Route: 042
     Dates: start: 20190816, end: 20190816
  17. ABRAXANE [Suspect]
     Active Substance: PACLITAXEL
     Dosage: 204 MILLIGRAM
     Route: 042
     Dates: start: 20190816, end: 20190816
  18. ABRAXANE [Suspect]
     Active Substance: PACLITAXEL
     Dosage: 204 MILLIGRAM
     Route: 042
     Dates: start: 20190830, end: 20190830
  19. DURVALUMAB. [Suspect]
     Active Substance: DURVALUMAB
     Dosage: 1500 MILLIGRAM
     Route: 042
     Dates: start: 20190710, end: 20190710

REACTIONS (1)
  - Abdominal abscess [Recovered/Resolved]

NARRATIVE: CASE EVENT DATE: 20191106
